FAERS Safety Report 7830206-0 (Version None)
Quarter: 2011Q4

REPORT INFORMATION
  Report Type: 
  Country: None (occurrence: None)
  Receive Date: 20111021
  Receipt Date: 20111007
  Transmission Date: 20120403
  Serious: Yes (Other)
  Sender: FDA-Public Use
  Company Number: PHHY2011DE89102

PATIENT
  Sex: Female

DRUGS (2)
  1. TASIGNA [Suspect]
     Dosage: 150 MG, QD
     Route: 048
  2. TASIGNA [Suspect]
     Indication: LEUKAEMIA
     Dosage: 400 MG, BID
     Route: 048

REACTIONS (2)
  - AORTIC VALVE DISEASE [None]
  - FLUID RETENTION [None]
